FAERS Safety Report 5357475-3 (Version None)
Quarter: 2007Q2

REPORT INFORMATION
  Report Type: 
  Country: None (occurrence: None)
  Receive Date: 20070530
  Receipt Date: 20061212
  Transmission Date: 20071010
  Serious: Yes (Other)
  Sender: FDA-Public Use
  Company Number: US_0510123070

PATIENT
  Age: 36 Year
  Sex: Male
  Weight: 120.2 kg

DRUGS (7)
  1. ZYPREXA [Suspect]
     Dates: start: 20030101, end: 20040101
  2. QUETIAPINE FUMARATE [Concomitant]
  3. RISPERIDONE [Concomitant]
  4. BUPROPION HCL [Concomitant]
  5. MIRTAZAPINE [Concomitant]
  6. PAROXETINE [Concomitant]
  7. CELEBREX [Concomitant]

REACTIONS (2)
  - DIABETES MELLITUS [None]
  - PANCREATITIS [None]
